FAERS Safety Report 22907497 (Version 3)
Quarter: 2023Q4

REPORT INFORMATION
  Report Type: Spontaneous
  Country: US (occurrence: US)
  Receive Date: 20230905
  Receipt Date: 20231024
  Transmission Date: 20240110
  Serious: Yes (Death, Other)
  Sender: FDA-Public Use
  Company Number: US-PFIZER INC-202300039466

PATIENT
  Age: 83 Year
  Sex: Female

DRUGS (3)
  1. VYNDAMAX [Suspect]
     Active Substance: TAFAMIDIS
     Indication: Cardiac amyloidosis
     Dosage: 61 MG, 1X/DAY, (61 MILLIGRAMS, ORALLY, ONCE DAILY)
     Route: 048
  2. VYNDAMAX [Suspect]
     Active Substance: TAFAMIDIS
     Indication: Amyloidosis
  3. SPIRONOLACTONE [Concomitant]
     Active Substance: SPIRONOLACTONE
     Dosage: 25 MG, 1X/DAY, (25 MILLIGRAM, ONCE DAILY)

REACTIONS (4)
  - Death [Fatal]
  - Dementia [Unknown]
  - Ischaemic stroke [Unknown]
  - Haemorrhagic stroke [Unknown]
